FAERS Safety Report 10383266 (Version 2)
Quarter: 2014Q4

REPORT INFORMATION
  Report Type: Spontaneous
  Country: US (occurrence: US)
  Receive Date: 20140814
  Receipt Date: 20141006
  Transmission Date: 20150528
  Serious: Yes (Other)
  Sender: FDA-Public Use
  Company Number: US-PFIZER INC-2014219818

PATIENT
  Age: 56 Year
  Sex: Male

DRUGS (23)
  1. SOLU-MEDROL [Suspect]
     Active Substance: METHYLPREDNISOLONE SODIUM SUCCINATE
     Indication: MULTIPLE SCLEROSIS
     Dosage: 1 G, GIVEN SLOWLY OVER 1 HR.DUATION OF TREATMENT 60MINS)
     Route: 042
     Dates: start: 20140515, end: 20140515
  2. VITAMIN B12 [Concomitant]
     Active Substance: CYANOCOBALAMIN
     Dosage: 1 ML, MONTHLY(QUANTITY 1 OF  1000 MCG/ML INJECT 1 MILLILITER ONCE A MONTH (6 REFILLS)
     Route: 042
     Dates: start: 20140710
  3. VITAMIN B12 [Concomitant]
     Active Substance: CYANOCOBALAMIN
     Dosage: 1 ML, MONTHLY( QUANTITY 1 OF  1000 MCG/ML INJECT 1 MILLILITER ONCE A MONTH (6 REFILLS)
     Route: 042
     Dates: start: 20131215
  4. AXIRON [Concomitant]
     Active Substance: TESTOSTERONE
     Dosage: 4 UNK, DAILY(4 DOSES PER DAY)
  5. ACUPRIN 81 [Concomitant]
     Dosage: 81 MG, UNK
     Route: 048
  6. MEDROL [Concomitant]
     Active Substance: METHYLPREDNISOLONE
     Dosage: 4 MG, 1X/DAY (QUANTITY 1 OF 4 MG TAKES TABLETS ONCE A DAY (12 REFILLS)
     Route: 048
     Dates: start: 20140818
  7. MEDROL [Concomitant]
     Active Substance: METHYLPREDNISOLONE
     Dosage: 4 MG, 1X/DAY (QUANTITY 1 OF 4 MG TAKES TABLETS ONCE A DAY (12 REFILLS)
     Route: 048
     Dates: start: 20131001
  8. REPLESTA [Concomitant]
     Dosage: 50000 IU, 1X/DAY ONCE A MONTH
     Route: 048
     Dates: start: 20140818
  9. VIAGRA [Concomitant]
     Active Substance: SILDENAFIL CITRATE
     Dosage: 25 MG, AS NEEDED(QUANTITY 25 OF 25MG ONCE TWICE A WEEK PRN (3 REFILLS)
     Route: 048
     Dates: start: 20140818
  10. VIAGRA [Concomitant]
     Active Substance: SILDENAFIL CITRATE
     Dosage: 25 MG, AS NEEDED (QUANTITY 25 OF 25MG ONCE TWICE A WEEK PRN (3 REFILLS)
     Route: 048
     Dates: start: 20130517
  11. VIAGRA [Concomitant]
     Active Substance: SILDENAFIL CITRATE
     Dosage: 25 MG, AS NEEDED (QUANTITY 25 OF 25MG ONCE TWICE A WEEK PRN (3 REFILLS)
     Route: 048
     Dates: start: 20130128
  12. MEDROL [Concomitant]
     Active Substance: METHYLPREDNISOLONE
     Dosage: 4 MG, 1X/DAY (QUANTITY 1 OF 4 MG TAKES TABLETS ONCE A DAY (12 REFILLS)
     Route: 048
     Dates: start: 20130515
  13. COPAXONE [Concomitant]
     Active Substance: GLATIRAMER ACETATE
     Dosage: 20 MG/ML, 1X/DAY (QUANTITY 90 OF 20 MG/ML INJECT ONCE DAILY (4 REFILLS)
     Route: 058
     Dates: start: 20130618
  14. MEDROL [Concomitant]
     Active Substance: METHYLPREDNISOLONE
     Dosage: 4 MG, 1X/DAY (QUANTITY 1 OF 4 MG TAKES TABLETS ONCE A DAY (12 REFILLS)
     Route: 048
     Dates: start: 20130109
  15. REPLESTA [Concomitant]
     Dosage: 50000 UNK, 1X/DAY(QUANTITY 4 OF 50,000 INTLS UNITS ONCE TAKES ONCE A WEEK (11 REFILLS)
     Dates: start: 20140114
  16. REPLESTA [Concomitant]
     Dosage: 50000 UNK, MONTHLY (QUANTITY 4 OF 50,000 INTLS UNITS ONCE A DAY ONCE A MONTH (6 REFILLS)
     Dates: start: 20130517
  17. PEPCID [Concomitant]
     Active Substance: FAMOTIDINE
     Dosage: 20 MG, 1X/DAY  (QUANTITY 30(QUANTITY 30 OF 20MG ONCE A DAY (1 REFILLS)
     Route: 048
     Dates: start: 20131029
  18. VITAMIN B12 [Concomitant]
     Active Substance: CYANOCOBALAMIN
     Dosage: 1 ML, MONTHLY( QUANTITY 30 OF  1000 MCG/ML INJECT 1 MILLILITER ONCE A MONTH (6 REFILLS)
     Route: 042
     Dates: start: 20130517
  19. MEDROL [Concomitant]
     Active Substance: METHYLPREDNISOLONE
     Dosage: 4 MG, 1X/DAY (QUANTITY 1 OF 4 MG TAKES TABLETS ONCE A DAY (12 REFILLS)
     Route: 048
     Dates: start: 20131002
  20. PEPCID [Concomitant]
     Active Substance: FAMOTIDINE
     Dosage: 20 MG, 1X/DAY (QUANTITY 30 OF 20MG ONCE A DAY (1 REFILLS)
     Route: 048
     Dates: start: 20140818
  21. ALFUZOSIN HYDROCHLORIDE. [Concomitant]
     Active Substance: ALFUZOSIN HYDROCHLORIDE
     Dosage: 10 MG, UNK(EXTENDED RELEASE)
     Route: 048
  22. REPLESTA [Concomitant]
     Dosage: 50000 UNK, WEEKLY (QUANTITY 4 OF 50,000 INTLS UNITS ONCE TAKES ONCE A WEEK (1 REFILLS)
     Dates: start: 20131103
  23. REPLESTA [Concomitant]
     Dosage: 50000 UNK, WEEKLY (QUANTITY 4 OF 50,000 INTLS UNITS ONCE A DAY ONCE A MONTH (1 REFILLS)
     Dates: start: 20130110

REACTIONS (2)
  - Atrial fibrillation [Recovered/Resolved]
  - Heart rate increased [Unknown]

NARRATIVE: CASE EVENT DATE: 20140805
